FAERS Safety Report 8817544 (Version 2)
Quarter: 2013Q1

REPORT INFORMATION
  Report Type: Report from Study
  Country: GB (occurrence: GB)
  Receive Date: 20121004
  Receipt Date: 20130107
  Transmission Date: 20140127
  Serious: Yes (Other)
  Sender: FDA-Public Use
  Company Number: PHFR2012GB005138

PATIENT
  Sex: Female

DRUGS (7)
  1. OMALIZUMAB [Suspect]
  2. PREDNISOLONE [Suspect]
     Indication: ASTHMA
     Dosage: 10 MG, ONCE/SINGLE
     Dates: start: 20120316, end: 201207
  3. SERETIDE INH [Concomitant]
     Dosage: 1000 UG, ONCE/SINGLE
  4. OMEPRAZOLE [Concomitant]
     Dosage: 40 MG, ONCE/SINGLE
  5. SALBUTAMOL [Concomitant]
     Dosage: 2.5 MG, PRN
  6. SALBUTAMOL [Concomitant]
     Dosage: 100 UG, PRN
  7. CLARITHROMYCIN [Concomitant]
     Dosage: 500 MG, ONCE/SINGLE

REACTIONS (1)
  - Arthralgia [Recovered/Resolved]
